FAERS Safety Report 10214034 (Version 1)
Quarter: 2014Q2

REPORT INFORMATION
  Report Type: Spontaneous
  Country: GB (occurrence: GB)
  Receive Date: 20140603
  Receipt Date: 20140603
  Transmission Date: 20141212
  Serious: Yes (Other)
  Sender: FDA-Public Use
  Company Number: GB-SA-2014SA066713

PATIENT
  Age: 50 Year
  Sex: Female
  Weight: 98.42 kg

DRUGS (2)
  1. CLEXANE [Suspect]
     Indication: POSTOPERATIVE THROMBOSIS
     Route: 058
     Dates: start: 20140420, end: 20140507
  2. PERINDOPRIL [Concomitant]

REACTIONS (7)
  - Lip swelling [Recovering/Resolving]
  - Rash [Recovering/Resolving]
  - Pruritus generalised [Recovering/Resolving]
  - Chest pain [Recovered/Resolved]
  - Swelling face [Recovering/Resolving]
  - Hypersensitivity [Recovering/Resolving]
  - Medication error [Unknown]
